FAERS Safety Report 24414847 (Version 4)
Quarter: 2024Q4

REPORT INFORMATION
  Report Type: Report from Study
  Country: BR (occurrence: BR)
  Receive Date: 20241009
  Receipt Date: 20241227
  Transmission Date: 20250114
  Serious: Yes (Hospitalization, Other)
  Sender: BIOCON
  Company Number: BR-BIOCON-BCN-2022-001058

PATIENT

DRUGS (26)
  1. TRASTUZUMAB-DKST [Suspect]
     Active Substance: TRASTUZUMAB-DKST
     Indication: HER2 positive breast cancer
     Dosage: UNK
     Route: 042
     Dates: start: 20220609
  2. TRASTUZUMAB-DKST [Suspect]
     Active Substance: TRASTUZUMAB-DKST
     Dosage: UNK
     Route: 042
     Dates: start: 20220707, end: 20230608
  3. TRASTUZUMAB-DKST [Suspect]
     Active Substance: TRASTUZUMAB-DKST
     Dosage: UNK
     Route: 042
     Dates: start: 20220728
  4. TRASTUZUMAB-DKST [Suspect]
     Active Substance: TRASTUZUMAB-DKST
     Dosage: UNK
     Route: 042
     Dates: start: 20220818
  5. TRASTUZUMAB-DKST [Suspect]
     Active Substance: TRASTUZUMAB-DKST
     Dosage: UNK
     Route: 042
     Dates: start: 20220922
  6. TRASTUZUMAB-DKST [Suspect]
     Active Substance: TRASTUZUMAB-DKST
     Dosage: UNK
     Route: 042
     Dates: start: 20221013
  7. TRASTUZUMAB-DKST [Suspect]
     Active Substance: TRASTUZUMAB-DKST
     Dosage: UNK
     Route: 042
     Dates: start: 20221103
  8. TRASTUZUMAB-DKST [Suspect]
     Active Substance: TRASTUZUMAB-DKST
     Dosage: UNK
     Route: 042
     Dates: start: 20221124
  9. TRASTUZUMAB-DKST [Suspect]
     Active Substance: TRASTUZUMAB-DKST
     Dosage: UNK
     Route: 042
     Dates: start: 20221215
  10. TRASTUZUMAB-DKST [Suspect]
     Active Substance: TRASTUZUMAB-DKST
     Dosage: UNK
     Route: 042
     Dates: start: 20230105
  11. TRASTUZUMAB-DKST [Suspect]
     Active Substance: TRASTUZUMAB-DKST
     Dosage: UNK
     Route: 042
     Dates: start: 20230202
  12. TRASTUZUMAB-DKST [Suspect]
     Active Substance: TRASTUZUMAB-DKST
     Dosage: UNK
     Route: 042
     Dates: start: 20230223
  13. TRASTUZUMAB-DKST [Suspect]
     Active Substance: TRASTUZUMAB-DKST
     Dosage: UNK
     Route: 042
     Dates: start: 20230316
  14. TRASTUZUMAB-DKST [Suspect]
     Active Substance: TRASTUZUMAB-DKST
     Dosage: UNK
     Route: 042
     Dates: start: 20230406
  15. TRASTUZUMAB-DKST [Suspect]
     Active Substance: TRASTUZUMAB-DKST
     Dosage: UNK
     Route: 042
     Dates: start: 20230406
  16. TRASTUZUMAB-DKST [Suspect]
     Active Substance: TRASTUZUMAB-DKST
     Dosage: UNK
     Route: 042
     Dates: start: 20230427
  17. TRASTUZUMAB-DKST [Suspect]
     Active Substance: TRASTUZUMAB-DKST
     Dosage: UNK
     Route: 042
     Dates: start: 20230518
  18. BISOPROLOL FUMARATE\HYDROCHLOROTHIAZIDE [Concomitant]
     Active Substance: BISOPROLOL FUMARATE\HYDROCHLOROTHIAZIDE
     Indication: Hypertension
     Dosage: 5 MILLIGRAM
     Route: 065
  19. TRAMADOL [Concomitant]
     Active Substance: TRAMADOL
     Indication: Pain
     Dosage: 50 MILLIGRAM
     Route: 065
     Dates: start: 20220820, end: 20220918
  20. TRAMADOL [Concomitant]
     Active Substance: TRAMADOL
     Indication: Intervertebral disc protrusion
  21. PREGABALIN [Concomitant]
     Active Substance: PREGABALIN
     Indication: Pain
     Dosage: 75 MILLIGRAM
     Route: 065
     Dates: start: 20220820, end: 20220918
  22. PREGABALIN [Concomitant]
     Active Substance: PREGABALIN
     Indication: Intervertebral disc protrusion
  23. NORTRIPTYLINE [Concomitant]
     Active Substance: NORTRIPTYLINE
     Indication: Pain
     Dosage: 50 MILLIGRAM
     Route: 065
     Dates: start: 20220820, end: 20220918
  24. NORTRIPTYLINE [Concomitant]
     Active Substance: NORTRIPTYLINE
     Indication: Intervertebral disc protrusion
  25. FLUOXETINE [Concomitant]
     Active Substance: FLUOXETINE HYDROCHLORIDE
     Indication: Anxiety
     Dosage: 20 MG
     Route: 065
     Dates: end: 20230509
  26. DESVENLAFAXINE [Concomitant]
     Active Substance: DESVENLAFAXINE
     Indication: Anxiety
     Dosage: 50 MG
     Route: 065
     Dates: start: 20230509

REACTIONS (7)
  - Dengue fever [Recovered/Resolved with Sequelae]
  - Nephrolithiasis [Recovered/Resolved]
  - Neutropenia [Recovering/Resolving]
  - Haematoma [Not Recovered/Not Resolved]
  - Arthralgia [Recovering/Resolving]
  - Vulvovaginal dryness [Recovering/Resolving]
  - Back pain [Recovered/Resolved]

NARRATIVE: CASE EVENT DATE: 20220915
